FAERS Safety Report 6391410-4 (Version None)
Quarter: 2009Q4

REPORT INFORMATION
  Report Type: 
  Country: None (occurrence: None)
  Receive Date: 20091007
  Receipt Date: 20090929
  Transmission Date: 20100525
  Serious: No
  Sender: FDA-Public Use
  Company Number: US-JNJFOC-20091000008

PATIENT
  Sex: Female
  Weight: 65.77 kg

DRUGS (4)
  1. FENTANYL TRANSDERMAL SYSTEM [Suspect]
     Indication: PAIN
     Route: 062
  2. IBUPROFEN [Concomitant]
     Indication: BACK PAIN
     Dosage: AS NEEDED
     Route: 048
  3. TYLENOL (CAPLET) [Concomitant]
     Indication: BACK PAIN
     Route: 048
  4. PRILOSEC [Concomitant]
     Indication: GASTROOESOPHAGEAL REFLUX DISEASE
     Route: 048

REACTIONS (5)
  - BACK PAIN [None]
  - DRUG SCREEN NEGATIVE [None]
  - HEAT THERAPY [None]
  - PRODUCT ADHESION ISSUE [None]
  - WRONG TECHNIQUE IN DRUG USAGE PROCESS [None]
